FAERS Safety Report 11980924 (Version 2)
Quarter: 2016Q1

REPORT INFORMATION
  Report Type: Report from Study
  Country: FR (occurrence: FR)
  Receive Date: 20160129
  Receipt Date: 20160209
  Transmission Date: 20160526
  Serious: Yes (Hospitalization, Other)
  Sender: FDA-Public Use
  Company Number: FR-INCYTE CORPORATION-2016IN000398

PATIENT
  Age: 65 Year
  Sex: Female
  Weight: 59 kg

DRUGS (5)
  1. EUPANTOL [Concomitant]
     Active Substance: PANTOPRAZOLE SODIUM
     Dosage: UNK
  2. PREVISCAN [Concomitant]
     Active Substance: FLUINDIONE
     Dosage: UNK
  3. JAKAFI [Suspect]
     Active Substance: RUXOLITINIB
     Indication: MYELOFIBROSIS
     Dosage: 15 MG, BID
     Route: 048
     Dates: start: 20110707
  4. PROPANOLOL [Concomitant]
     Active Substance: PROPRANOLOL HYDROCHLORIDE
     Dosage: UNK
  5. ALDACTONE [Concomitant]
     Active Substance: SPIRONOLACTONE

REACTIONS (22)
  - Portal hypertension [Unknown]
  - Thrombocytopenia [Unknown]
  - Varices oesophageal [Unknown]
  - Haemangioma [Unknown]
  - Balance disorder [Unknown]
  - Oedema peripheral [Not Recovered/Not Resolved]
  - Vitritis [Unknown]
  - Visual impairment [Unknown]
  - Conjunctival hyperaemia [Unknown]
  - Dyspnoea exertional [Not Recovered/Not Resolved]
  - Peripheral venous disease [Not Recovered/Not Resolved]
  - Necrotising retinitis [Unknown]
  - Eye infection toxoplasmal [Recovering/Resolving]
  - Ocular discomfort [Unknown]
  - Erythema [Unknown]
  - Cholestasis [Unknown]
  - Eye discharge [Unknown]
  - Fluid retention [Unknown]
  - Alanine aminotransferase increased [Unknown]
  - Retinal pigmentation [Unknown]
  - Uveitis [Unknown]
  - Vision blurred [Unknown]

NARRATIVE: CASE EVENT DATE: 201506
